FAERS Safety Report 8385538 (Version 3)
Quarter: 2012Q4

REPORT INFORMATION
  Report Type: 
  Country: US (occurrence: US)
  Receive Date: 20120202
  Receipt Date: 20121002
  Transmission Date: 20130627
  Serious: Yes (Hospitalization, Other)
  Sender: FDA-Public Use
  Company Number: US-009507513-1202USA00032

PATIENT

DRUGS (4)
  1. FOSAMAX [Suspect]
     Indication: PROPHYLAXIS
     Dosage: UNK
     Route: 048
     Dates: start: 1995, end: 200310
  2. FOSAMAX [Suspect]
     Indication: OSTEOPOROSIS PROPHYLAXIS
     Dosage: 70 mg, qw
     Route: 048
     Dates: start: 20031221
  3. COUMADIN [Concomitant]
     Indication: THROMBOSIS PROPHYLAXIS
     Dosage: 5 mg, qd
     Dates: start: 1994
  4. PROCARDIA [Concomitant]
     Indication: CARDIAC DISORDER
     Dosage: 30 mg, UNK
     Dates: start: 1990

REACTIONS (45)
  - Femur fracture [Unknown]
  - Adverse event [Unknown]
  - Device failure [Unknown]
  - Colon cancer [Unknown]
  - Muscle strain [Unknown]
  - Fracture delayed union [Unknown]
  - Musculoskeletal discomfort [Unknown]
  - Musculoskeletal discomfort [Unknown]
  - Foot fracture [Unknown]
  - Femur fracture [Unknown]
  - Intramedullary rod insertion [Unknown]
  - Arthralgia [Unknown]
  - Joint range of motion decreased [Unknown]
  - Vascular calcification [Unknown]
  - Presyncope [Unknown]
  - Hyperuricaemia [Unknown]
  - Hypertension [Unknown]
  - Hyperlipidaemia [Unknown]
  - Arthritis [Unknown]
  - Colon operation [Unknown]
  - Limb operation [Unknown]
  - Knee arthroplasty [Unknown]
  - Eye operation [Unknown]
  - Ecchymosis [Unknown]
  - Oedema peripheral [Unknown]
  - Osteoarthritis [Unknown]
  - Ligament sprain [Unknown]
  - Muscle spasms [Unknown]
  - Skeletal injury [Unknown]
  - Venous insufficiency [Unknown]
  - Tachycardia [Unknown]
  - Fall [Unknown]
  - Head injury [Unknown]
  - Laceration [Unknown]
  - Mydriasis [Unknown]
  - Confusional state [Unknown]
  - Headache [Unknown]
  - Squamous cell carcinoma [Unknown]
  - Nasal congestion [Unknown]
  - Upper-airway cough syndrome [Unknown]
  - Hearing impaired [Unknown]
  - Palpitations [Unknown]
  - Pain in extremity [Unknown]
  - Ligament sprain [Unknown]
  - Headache [Unknown]
